FAERS Safety Report 4719824-6 (Version None)
Quarter: 2005Q3

REPORT INFORMATION
  Report Type: 
  Country: None (occurrence: None)
  Receive Date: 20050721
  Receipt Date: 20041122
  Transmission Date: 20060218
  Serious: No
  Sender: FDA-Public Use
  Company Number: US-GLAXOSMITHKLINE-A0534705A

PATIENT
  Sex: Male

DRUGS (3)
  1. AVANDIA [Suspect]
     Route: 048
  2. GLUCOPHAGE [Concomitant]
     Route: 065
  3. MICRONASE [Concomitant]
     Route: 065

REACTIONS (5)
  - CARDIAC FLUTTER [None]
  - LACRIMATION INCREASED [None]
  - MUSCULAR WEAKNESS [None]
  - PARAESTHESIA [None]
  - WEIGHT INCREASED [None]
